FAERS Safety Report 19043033 (Version 1)
Quarter: 2021Q1

REPORT INFORMATION
  Report Type: Report from Study
  Country: US (occurrence: US)
  Receive Date: 20210323
  Receipt Date: 20210323
  Transmission Date: 20210420
  Serious: Yes (Death, Hospitalization)
  Sender: FDA-Public Use
  Company Number: US-PFIZER INC-2021257361

PATIENT
  Age: 14 Year
  Sex: Male
  Weight: 96 kg

DRUGS (3)
  1. ASPIRIN (E.C.) [Suspect]
     Active Substance: ASPIRIN
     Indication: THROMBOSIS
     Dosage: 5 MG/KG, DAILY
  2. ASPIRIN (E.C.) [Suspect]
     Active Substance: ASPIRIN
     Dosage: 75 MG
  3. DALTEPARIN SODIUM [Suspect]
     Active Substance: DALTEPARIN SODIUM
     Indication: THROMBOSIS
     Dosage: 10 UNITS/KG, DAILY

REACTIONS (1)
  - Cerebrovascular accident [Fatal]
